FAERS Safety Report 4859989-9 (Version None)
Quarter: 2005Q4

REPORT INFORMATION
  Report Type: 
  Country: None (occurrence: None)
  Receive Date: 20051219
  Receipt Date: 20050516
  Transmission Date: 20060501
  Serious: Yes (Hospitalization, Disabling)
  Sender: FDA-Public Use
  Company Number: US-MERCK-0505USA01967

PATIENT
  Age: 52 Year
  Sex: Female
  Weight: 64 kg

DRUGS (12)
  1. VIOXX [Suspect]
     Indication: ARTHRITIS
     Route: 048
  2. VIOXX [Suspect]
     Indication: BACK DISORDER
     Route: 048
     Dates: start: 20000101, end: 20040101
  3. VIOXX [Suspect]
     Route: 048
  4. INSULIN [Concomitant]
     Route: 065
  5. SKELAXIN [Concomitant]
     Route: 065
  6. COREG [Concomitant]
     Route: 065
  7. ZOCOR [Concomitant]
     Route: 065
  8. TYLENOL [Concomitant]
     Route: 065
  9. REGLAN [Concomitant]
     Route: 065
  10. ZESTRIL [Concomitant]
     Route: 065
  11. LORTAB [Concomitant]
     Route: 065
  12. VIOXX [Suspect]
     Route: 048
     Dates: start: 20000101, end: 20040101

REACTIONS (33)
  - ABDOMINAL PAIN [None]
  - BLOOD POTASSIUM INCREASED [None]
  - CAROTID BRUIT [None]
  - CERVICAL VERTEBRAL FRACTURE [None]
  - COMA [None]
  - CONCUSSION [None]
  - CORONARY ARTERY DISEASE [None]
  - DEVICE FAILURE [None]
  - DIABETIC GASTROPARESIS [None]
  - DRUG HYPERSENSITIVITY [None]
  - FLANK PAIN [None]
  - HAEMOPNEUMOTHORAX [None]
  - HEAD INJURY [None]
  - HERPES SIMPLEX [None]
  - HYPERSENSITIVITY [None]
  - HYPOALBUMINAEMIA [None]
  - HYPOKALAEMIA [None]
  - LACERATION [None]
  - MULTIPLE FRACTURES [None]
  - MYOCARDIAL INFARCTION [None]
  - NAUSEA [None]
  - NORMOCHROMIC NORMOCYTIC ANAEMIA [None]
  - OEDEMA PERIPHERAL [None]
  - PNEUMONIA [None]
  - PULMONARY OEDEMA [None]
  - PYREXIA [None]
  - RIB FRACTURE [None]
  - ROAD TRAFFIC ACCIDENT [None]
  - SEPSIS [None]
  - SPLENIC RUPTURE [None]
  - TENDON RUPTURE [None]
  - VOLUME BLOOD INCREASED [None]
  - WOUND INFECTION [None]
